FAERS Safety Report 9832643 (Version 2)
Quarter: 2014Q1

REPORT INFORMATION
  Report Type: Spontaneous
  Country: US (occurrence: US)
  Receive Date: 20140121
  Receipt Date: 20140121
  Transmission Date: 20141002
  Serious: Yes (Hospitalization, Other)
  Sender: FDA-Public Use
  Company Number: US-NAPPMUNDI-USA-2013-0103485

PATIENT
  Age: 65 Year
  Sex: Female

DRUGS (2)
  1. MS CONTIN TABLETS [Suspect]
     Indication: PAIN
     Dosage: 30 MG, TID
     Route: 048
  2. MS CONTIN TABLETS [Suspect]
     Dosage: 30 MG, BID
     Route: 048

REACTIONS (9)
  - Carbon monoxide poisoning [Unknown]
  - Hospitalisation [Unknown]
  - Intervertebral disc protrusion [Unknown]
  - Bone disorder [Unknown]
  - Bipolar disorder [Unknown]
  - Drug withdrawal syndrome [Unknown]
  - Rhinorrhoea [Unknown]
  - Unevaluable event [Unknown]
  - Intentional drug misuse [Unknown]
